FAERS Safety Report 9941987 (Version 1)
Quarter: 2014Q1

REPORT INFORMATION
  Report Type: Report from Study
  Country: US (occurrence: US)
  Receive Date: 20140303
  Receipt Date: 20140303
  Transmission Date: 20141002
  Serious: Yes (Other)
  Sender: FDA-Public Use
  Company Number: US-ABBVIE-13P-163-1040993-00

PATIENT
  Age: 50 Year
  Sex: Female

DRUGS (9)
  1. HUMIRA [Suspect]
     Indication: PSORIASIS
     Dates: start: 201111, end: 20121221
  2. METOPROLOL [Concomitant]
     Indication: HYPERTENSION
  3. VENLAFAXINE [Concomitant]
     Indication: DEPRESSION
     Dosage: 150 MG DAILY
  4. ISOSORBIDE [Concomitant]
     Indication: CHEST PAIN
     Dosage: 30 MG DAILY
  5. ISOSORBIDE [Concomitant]
     Indication: PROPHYLAXIS
  6. NITRO [Concomitant]
     Indication: CHEST PAIN
     Route: 060
  7. OMEPRAZOLE [Concomitant]
     Indication: GASTROOESOPHAGEAL REFLUX DISEASE
     Dosage: 40 MG DAILY
  8. SIMVASTATIN [Concomitant]
     Indication: BLOOD CHOLESTEROL INCREASED
     Dosage: 40 MG, EVERY NIGHT
  9. TOPIRAMATE [Concomitant]
     Indication: MUSCLE SPASMS

REACTIONS (2)
  - Cataract [Not Recovered/Not Resolved]
  - Visual impairment [Unknown]
